FAERS Safety Report 4465780-8 (Version None)
Quarter: 2004Q4

REPORT INFORMATION
  Report Type: 
  Country: None (occurrence: None)
  Receive Date: 20041005
  Receipt Date: 20040930
  Transmission Date: 20050328
  Serious: Yes (Other)
  Sender: FDA-Public Use
  Company Number: US-JNJFOC-20041000274

PATIENT
  Sex: Female

DRUGS (4)
  1. INFLIXIMAB [Suspect]
     Indication: RHEUMATOID ARTHRITIS
     Dosage: 4 VIALS EVERY FOUR WEEKS
     Route: 042
     Dates: start: 20010530, end: 20031101
  2. METHOTREXATE [Concomitant]
  3. FOLIC ACID [Concomitant]
  4. STEROID [Concomitant]

REACTIONS (1)
  - LUPUS-LIKE SYNDROME [None]
